FAERS Safety Report 9071324 (Version 1)
Quarter: 2013Q1

REPORT INFORMATION
  Report Type: Spontaneous
  Country: US (occurrence: US)
  Receive Date: 20130206
  Receipt Date: 20130206
  Transmission Date: 20140127
  Serious: No
  Sender: FDA-Public Use
  Company Number: US-ALLERGAN-1210405US

PATIENT
  Age: 63 Year
  Sex: Female

DRUGS (6)
  1. RESTASIS? [Suspect]
     Indication: DRY EYE
     Dosage: 2 GTT, BID
     Route: 047
     Dates: start: 201207
  2. REFRESH DRY EYE THERAPY [Concomitant]
     Indication: DRY EYE
     Dosage: UNK, PRN
     Route: 047
  3. ANTI-INFLAMMATORY EYE DROP [Concomitant]
     Indication: DRY EYE
     Dosage: UNK
     Route: 047
     Dates: start: 201207
  4. ZENPEP [Concomitant]
     Indication: SJOGREN^S SYNDROME
     Dosage: UNK
     Dates: start: 201207
  5. NEXIUM                             /01479302/ [Concomitant]
     Indication: GASTROOESOPHAGEAL REFLUX DISEASE
     Dosage: UNK
  6. DRY MOUTH LOZENGE [Concomitant]
     Indication: DRY MOUTH
     Dosage: UNK
     Dates: start: 201207

REACTIONS (2)
  - Pain [Recovering/Resolving]
  - Eye irritation [Recovering/Resolving]
